FAERS Safety Report 12426696 (Version 1)
Quarter: 2016Q2

REPORT INFORMATION
  Report Type: Spontaneous
  Country: IT (occurrence: IT)
  Receive Date: 20160601
  Receipt Date: 20160601
  Transmission Date: 20160815
  Serious: Yes (Hospitalization)
  Sender: FDA-Public Use
  Company Number: IT-BIOGEN-2015BI128411

PATIENT
  Age: 31 Year
  Sex: Male

DRUGS (2)
  1. TYSABRI [Suspect]
     Active Substance: NATALIZUMAB
     Route: 042
  2. TYSABRI [Suspect]
     Active Substance: NATALIZUMAB
     Indication: MULTIPLE SCLEROSIS
     Route: 042
     Dates: start: 20140513, end: 20150803

REACTIONS (6)
  - Extensor plantar response [Unknown]
  - Reflexes abnormal [Unknown]
  - Headache [Recovered/Resolved]
  - Muscle spasticity [Unknown]
  - Ophthalmic herpes zoster [Recovered/Resolved with Sequelae]
  - Body temperature increased [Recovered/Resolved]

NARRATIVE: CASE EVENT DATE: 201508
